FAERS Safety Report 12247787 (Version 2)
Quarter: 2017Q3

REPORT INFORMATION
  Report Type: Report from Study
  Country: CA (occurrence: CA)
  Receive Date: 20160408
  Receipt Date: 20170703
  Transmission Date: 20171127
  Serious: Yes (Other)
  Sender: FDA-Public Use
  Company Number: CA-ROCHE-1736047

PATIENT
  Age: 65 Year
  Sex: Female

DRUGS (11)
  1. RITUXAN [Suspect]
     Active Substance: RITUXIMAB
     Indication: RHEUMATOID ARTHRITIS
     Dosage: DAY 1,15. PREVIOUS INFUSION ON 14/JUN/2017, CURRENT INFUSIONON 28/JUN/2017
     Route: 042
     Dates: start: 20150410
  2. METHYLPREDNISOLONE. [Suspect]
     Active Substance: METHYLPREDNISOLONE
     Indication: PRODUCT USED FOR UNKNOWN INDICATION
     Dosage: DAY 1,15.
     Route: 042
     Dates: start: 20150410, end: 20151008
  3. SOLU-CORTEF [Concomitant]
     Active Substance: HYDROCORTISONE SODIUM SUCCINATE
     Route: 042
     Dates: start: 20151022
  4. VAGIFEM [Concomitant]
     Active Substance: ESTRADIOL
     Dosage: 10
     Route: 065
  5. DIAZEPAM. [Concomitant]
     Active Substance: DIAZEPAM
  6. DIPHENHYDRAMINE HCL [Concomitant]
     Active Substance: DIPHENHYDRAMINE HYDROCHLORIDE
     Route: 048
     Dates: start: 20150410
  7. PROMETRIUM [Concomitant]
     Active Substance: PROGESTERONE
  8. MOBICOX [Concomitant]
     Active Substance: MELOXICAM
  9. OXAZEPAM. [Concomitant]
     Active Substance: OXAZEPAM
  10. OXYCODONE [Concomitant]
     Active Substance: OXYCODONE
  11. ACETAMINOPHEN. [Concomitant]
     Active Substance: ACETAMINOPHEN
     Route: 048
     Dates: start: 20150410

REACTIONS (10)
  - Urogenital disorder [Unknown]
  - Limb injury [Unknown]
  - Back pain [Unknown]
  - Malaise [Recovered/Resolved]
  - Asthenia [Recovered/Resolved]
  - Headache [Unknown]
  - Heart rate increased [Unknown]
  - Swelling face [Unknown]
  - White blood cells urine [Unknown]
  - Arthralgia [Recovered/Resolved]

NARRATIVE: CASE EVENT DATE: 201510
